FAERS Safety Report 7794497-7 (Version None)
Quarter: 2011Q4

REPORT INFORMATION
  Report Type: 
  Country: None (occurrence: None)
  Receive Date: 20111004
  Receipt Date: 20110926
  Transmission Date: 20120403
  Serious: Yes (Hospitalization)
  Sender: FDA-Public Use
  Company Number: CZ-TEVA-303171ISR

PATIENT
  Age: 83 Year
  Sex: Female

DRUGS (2)
  1. NORFLOXACIN [Interacting]
     Indication: URINARY TRACT INFECTION
     Dosage: 800 MILLIGRAM;
  2. TAMOXIFEN CITRATE [Suspect]
     Dosage: 20 MILLIGRAM;

REACTIONS (5)
  - SINUS BRADYCARDIA [None]
  - CHEST DISCOMFORT [None]
  - DRUG INTERACTION [None]
  - ORTHOSTATIC HYPOTENSION [None]
  - ELECTROCARDIOGRAM QT PROLONGED [None]
